FAERS Safety Report 4398684-X (Version None)
Quarter: 2004Q3

REPORT INFORMATION
  Report Type: 
  Country: None (occurrence: None)
  Receive Date: 20040712
  Receipt Date: 20040701
  Transmission Date: 20050211
  Serious: No
  Sender: FDA-Public Use
  Company Number: 04P-087-0263173-00

PATIENT
  Age: 6 Month
  Sex: Male

DRUGS (6)
  1. SEVOFLURANE [Suspect]
     Indication: ANAESTHESIA
     Dosage: INHALATION
     Route: 055
     Dates: start: 20030604, end: 20030604
  2. NITROUS OXIDE [Concomitant]
  3. OXYGEN [Concomitant]
  4. NITRAZEPAM [Concomitant]
  5. FAMOTIDINE [Concomitant]
  6. VECURONIUM BROMIDE [Concomitant]

REACTIONS (2)
  - ELECTROCARDIOGRAM ST SEGMENT ABNORMAL [None]
  - VENTRICULAR FIBRILLATION [None]
